FAERS Safety Report 16080680 (Version 1)
Quarter: 2019Q1

REPORT INFORMATION
  Report Type: Report from Study
  Country: None (occurrence: BR)
  Receive Date: 20190316
  Receipt Date: 20190316
  Transmission Date: 20190418
  Serious: Yes (Disabling)
  Sender: FDA-Public Use
  Company Number: BR-ABBVIE-19K-020-2702602-00

PATIENT
  Sex: Male
  Weight: 85 kg

DRUGS (3)
  1. HUMIRA [Suspect]
     Active Substance: ADALIMUMAB
     Indication: ANKYLOSING SPONDYLITIS
     Route: 058
     Dates: start: 20181109
  2. FLANCOX [Concomitant]
     Active Substance: ETODOLAC
     Indication: ANKYLOSING SPONDYLITIS
     Dates: start: 20190208, end: 20190222
  3. HUMIRA [Suspect]
     Active Substance: ADALIMUMAB
     Route: 058

REACTIONS (11)
  - Arthritis [Unknown]
  - Pyrexia [Recovering/Resolving]
  - Weight decreased [Recovering/Resolving]
  - Lymphadenitis bacterial [Not Recovered/Not Resolved]
  - Gait inability [Unknown]
  - Blood cholesterol abnormal [Unknown]
  - Feeling cold [Unknown]
  - Malaise [Unknown]
  - Bedridden [Unknown]
  - Joint swelling [Recovering/Resolving]
  - Groin pain [Not Recovered/Not Resolved]

NARRATIVE: CASE EVENT DATE: 20190101
